FAERS Safety Report 10495670 (Version 1)
Quarter: 2014Q4

REPORT INFORMATION
  Report Type: Spontaneous
  Country: CA (occurrence: CA)
  Receive Date: 20141003
  Receipt Date: 20141003
  Transmission Date: 20150528
  Serious: Yes (Death, Hospitalization)
  Sender: FDA-Public Use
  Company Number: CA-BAXTER-2014BAX058431

PATIENT
  Age: 73 Year
  Sex: Female
  Weight: 44 kg

DRUGS (2)
  1. EXTRANEAL [Suspect]
     Active Substance: CALCIUM CHLORIDE\ICODEXTRIN\MAGNESIUM CHLORIDE\SODIUM CHLORIDE\SODIUM LACTATE
     Indication: LUPUS NEPHRITIS
     Route: 033
     Dates: start: 20131031
  2. DIANEAL LOW CALCIUM PERITONEAL DIALYSIS SOLUTION WITH DEXTROSE [Suspect]
     Active Substance: CALCIUM CHLORIDE\DEXTROSE\MAGNESIUM CHLORIDE\SODIUM CHLORIDE\SODIUM LACTATE
     Indication: LUPUS NEPHRITIS
     Route: 033
     Dates: start: 20131031

REACTIONS (5)
  - Sepsis [Unknown]
  - Peripheral circulatory failure [Unknown]
  - Condition aggravated [Recovered/Resolved with Sequelae]
  - Systemic lupus erythematosus [Fatal]
  - Hyperkeratosis [Recovered/Resolved with Sequelae]

NARRATIVE: CASE EVENT DATE: 2013
